FAERS Safety Report 22400027 (Version 1)
Quarter: 2023Q2

REPORT INFORMATION
  Report Type: Spontaneous
  Country: CA (occurrence: None)
  Receive Date: 20230602
  Receipt Date: 20230602
  Transmission Date: 20230721
  Serious: Yes (Other)
  Sender: FDA-Public Use
  Company Number: 2023A123650

PATIENT
  Age: 79 Year
  Sex: Female

DRUGS (8)
  1. ACALABRUTINIB [Suspect]
     Active Substance: ACALABRUTINIB
     Indication: Chronic lymphocytic leukaemia
     Route: 048
  2. SIMVASTATIN [Concomitant]
     Active Substance: SIMVASTATIN
  3. RAMIPRIL [Concomitant]
     Active Substance: RAMIPRIL
  4. TRAZODONE [Concomitant]
     Active Substance: TRAZODONE HYDROCHLORIDE
  5. AMLODIPINE [Concomitant]
     Active Substance: AMLODIPINE BESYLATE
  6. DULOXETINE [Concomitant]
     Active Substance: DULOXETINE
  7. BRINZOLAMIDE [Concomitant]
     Active Substance: BRINZOLAMIDE
     Route: 061
  8. TIMOLOL [Concomitant]
     Active Substance: TIMOLOL
     Route: 061

REACTIONS (1)
  - Spontaneous hyphaema [Recovered/Resolved]
